FAERS Safety Report 8783150 (Version 1)
Quarter: 2012Q4

REPORT INFORMATION
  Report Type: 
  Country: US (occurrence: US)
  Receive Date: 20120913
  Receipt Date: 20120913
  Transmission Date: 20130627
  Serious: No
  Sender: FDA-Public Use
  Company Number: US-ASTRAZENECA-2012SE69190

PATIENT
  Age: 69 Year
  Sex: Male
  Weight: 93 kg

DRUGS (8)
  1. CRESTOR [Suspect]
     Indication: BLOOD CHOLESTEROL INCREASED
     Route: 048
     Dates: start: 201206
  2. CRESTOR [Suspect]
     Indication: BLOOD TRIGLYCERIDES INCREASED
     Route: 048
     Dates: start: 201206
  3. BLOOD PRESSURE MEDICATIONS [Concomitant]
  4. DILTIAZEM [Concomitant]
     Indication: HYPERTENSION
  5. LOSARTAN [Concomitant]
  6. HCTZ [Concomitant]
  7. ASA [Concomitant]
  8. ANACIN [Concomitant]

REACTIONS (3)
  - Balance disorder [Unknown]
  - Pain in extremity [Not Recovered/Not Resolved]
  - Arthralgia [Not Recovered/Not Resolved]
